FAERS Safety Report 17195850 (Version 1)
Quarter: 2019Q4

REPORT INFORMATION
  Report Type: Spontaneous
  Country: US (occurrence: US)
  Receive Date: 20191224
  Receipt Date: 20191224
  Transmission Date: 20200122
  Serious: No
  Sender: FDA-Public Use
  Company Number: US-BAYER-2019-235118

PATIENT
  Age: 68 Year
  Sex: Male

DRUGS (2)
  1. ALEVE [Suspect]
     Active Substance: NAPROXEN SODIUM
     Route: 048
  2. ONE-A-DAY [MINERALS NOS;VITAMINS NOS] [Concomitant]

REACTIONS (1)
  - Malaise [Unknown]
